FAERS Safety Report 9300195 (Version 10)
Quarter: 2014Q2

REPORT INFORMATION
  Report Type: Report from Study
  Country: CA (occurrence: CA)
  Receive Date: 20130521
  Receipt Date: 20140404
  Transmission Date: 20141212
  Serious: Yes (Death, Other)
  Sender: FDA-Public Use
  Company Number: PHHY2012CA036328

PATIENT
  Age: 57 Year
  Sex: Female

DRUGS (5)
  1. SANDOSTATIN LAR [Suspect]
     Indication: PANCREATIC CARCINOMA
     Dosage: 30 MG, EVERY 4 WEEKS
     Route: 030
     Dates: start: 20120405
  2. SANDOSTATIN LAR [Suspect]
     Indication: OFF LABEL USE
     Dosage: 30 MG, EVERY 3 WEEKS
     Route: 030
  3. SANDOSTATIN LAR [Suspect]
     Dosage: 40 MG EVERY 3 WEEKS
     Route: 030
     Dates: end: 20140305
  4. AFINITOR [Suspect]
     Indication: PANCREATIC CARCINOMA
     Dosage: 5 MG, QD
     Route: 048
  5. AFINITOR [Suspect]
     Dosage: 10 MG, QD
     Route: 048
     Dates: start: 20120501

REACTIONS (12)
  - Death [Fatal]
  - Neoplasm [Unknown]
  - Back pain [Unknown]
  - Pneumonia [Unknown]
  - Metastases to bone [Unknown]
  - Pain in extremity [Unknown]
  - Neck pain [Unknown]
  - Hypoglycaemia [Unknown]
  - Eating disorder [Unknown]
  - Gastroenteritis [Unknown]
  - Dehydration [Recovering/Resolving]
  - Asthenia [Unknown]
